FAERS Safety Report 20923871 (Version 1)
Quarter: 2022Q2

REPORT INFORMATION
  Report Type: Spontaneous
  Country: US (occurrence: None)
  Receive Date: 20220606
  Receipt Date: 20220606
  Transmission Date: 20220720
  Serious: Yes (Hospitalization)
  Sender: FDA-Public Use
  Company Number: None

PATIENT
  Age: 67 Year
  Sex: Male

DRUGS (1)
  1. AXICABTAGENE CILOLEUCEL [Suspect]
     Active Substance: AXICABTAGENE CILOLEUCEL
     Indication: Diffuse large B-cell lymphoma
     Dosage: FREQUENCY : ONCE;?
     Route: 041
     Dates: start: 20210607, end: 20210607

REACTIONS (5)
  - Cytokine release syndrome [None]
  - Neurotoxicity [None]
  - Staphylococcal infection [None]
  - Empyema [None]
  - Pneumothorax [None]

NARRATIVE: CASE EVENT DATE: 20210607
